FAERS Safety Report 5256682-8 (Version None)
Quarter: 2007Q1

REPORT INFORMATION
  Report Type: 
  Country: None (occurrence: None)
  Receive Date: 20070306
  Receipt Date: 20070227
  Transmission Date: 20070707
  Serious: Yes (Hospitalization)
  Sender: FDA-Public Use
  Company Number: FR-PFIZER INC-2006153551

PATIENT
  Age: 25 Year
  Sex: Female
  Weight: 55 kg

DRUGS (3)
  1. MEDROL [Suspect]
     Indication: TONSILLITIS
     Route: 048
     Dates: start: 20061005, end: 20061010
  2. PYOSTACINE [Suspect]
     Indication: TONSILLITIS
     Route: 048
     Dates: start: 20061005, end: 20061010
  3. LEVONORGESTREL [Suspect]
     Route: 048
     Dates: start: 20061009, end: 20061009

REACTIONS (1)
  - COLITIS [None]
